FAERS Safety Report 9164450 (Version 1)
Quarter: 2013Q1

REPORT INFORMATION
  Report Type: Spontaneous
  Country: US (occurrence: None)
  Receive Date: 20130205
  Receipt Date: 20130205
  Transmission Date: 20140127
  Serious: Yes (Hospitalization)
  Sender: FDA-Public Use
  Company Number: JPI-P-029468

PATIENT
  Age: 51 Year
  Sex: Female
  Weight: 58.97 kg

DRUGS (8)
  1. XYREM (500 MILLIGRAM/MILLILITERS, SOLUTION) (SODIUM OXYBATE) [Suspect]
     Indication: NARCOLEPSY
     Route: 048
     Dates: start: 2003
  2. ARIPIPRAZOLE [Concomitant]
  3. VENLAFAXINE HYDROCHLORIDE [Concomitant]
  4. GABAPENTIN [Concomitant]
  5. AMPHETAMINE, DEXTROAMPHETAMINE MIXED SALTS [Concomitant]
  6. HYDROCHLOROTHIAZIDE [Concomitant]
  7. LISINOPRIL [Concomitant]
  8. OMEPRAZOLE [Concomitant]

REACTIONS (4)
  - Menorrhagia [None]
  - Tooth infection [None]
  - Eye swelling [None]
  - Gastroenteritis viral [None]
